FAERS Safety Report 16425184 (Version 1)
Quarter: 2019Q2

REPORT INFORMATION
  Report Type: Report from Study
  Country: US (occurrence: US)
  Receive Date: 20190613
  Receipt Date: 20190613
  Transmission Date: 20190711
  Serious: Yes (Other)
  Sender: FDA-Public Use
  Company Number: US-BAYER-2019-110492

PATIENT
  Age: 57 Year

DRUGS (1)
  1. ASPIRIN. [Suspect]
     Active Substance: ASPIRIN
     Indication: CARDIAC VENTRICULAR THROMBOSIS
     Dosage: UNK

REACTIONS (4)
  - Product use in unapproved indication [None]
  - Anaemia [None]
  - Gastrointestinal haemorrhage [None]
  - Off label use [None]
